FAERS Safety Report 6844734-8 (Version None)
Quarter: 2010Q3

REPORT INFORMATION
  Report Type: 
  Country: None (occurrence: None)
  Receive Date: 20100715
  Receipt Date: 20100710
  Transmission Date: 20110219
  Serious: Yes (Hospitalization, Other)
  Sender: FDA-Public Use
  Company Number: DE-BRISTOL-MYERS SQUIBB COMPANY-15177611

PATIENT
  Age: 70 Year
  Sex: Male
  Weight: 126 kg

DRUGS (1)
  1. ONGLYZA [Suspect]
     Indication: DIABETES MELLITUS
     Dosage: 1 DF = 1 TAB
     Route: 048
     Dates: start: 20100617

REACTIONS (2)
  - BLISTER [None]
  - CARDIAC FAILURE [None]
